FAERS Safety Report 4695665-3 (Version None)
Quarter: 2005Q2

REPORT INFORMATION
  Report Type: 
  Country: None (occurrence: None)
  Receive Date: 20050608
  Receipt Date: 20050321
  Transmission Date: 20051028
  Serious: Yes (Hospitalization)
  Sender: FDA-Public Use
  Company Number: A03200500801

PATIENT
  Age: 40 Year
  Sex: Male

DRUGS (9)
  1. ELOXATIN [Suspect]
     Indication: COLON CANCER
     Dosage: INTRAVENOUS NOS
     Route: 042
     Dates: start: 20050101, end: 20050101
  2. FLUOROURACIL [Suspect]
     Indication: COLON CANCER
     Dosage: INTRAVENOUS NOS
     Route: 042
     Dates: start: 20050101
  3. LEUCOVORIN CALCIUM [Suspect]
     Indication: COLON CANCER
     Dosage: INTRAVENOUS NOS
     Route: 042
  4. DOCUSATE SODIUM [Concomitant]
  5. MULTI-VITAMINS [Concomitant]
  6. WARFARIN SODIUM [Concomitant]
  7. SENNA [Concomitant]
  8. ZOLPIDEM TARTRATE [Concomitant]
  9. LORAZEPAM [Concomitant]

REACTIONS (4)
  - ABDOMINAL PAIN UPPER [None]
  - ANOREXIA [None]
  - NAUSEA [None]
  - PANCREATITIS ACUTE [None]
